FAERS Safety Report 11673188 (Version 1)
Quarter: 2015Q4

REPORT INFORMATION
  Report Type: Spontaneous
  Country: US (occurrence: US)
  Receive Date: 20151027
  Receipt Date: 20151027
  Transmission Date: 20160304
  Serious: Yes (Hospitalization)
  Sender: FDA-Public Use
  Company Number: US-ELI_LILLY_AND_COMPANY-US201007003720

PATIENT
  Sex: Male

DRUGS (20)
  1. COLACE [Concomitant]
     Active Substance: DOCUSATE SODIUM
     Dosage: 100 MG, 2/D
     Route: 065
  2. PEPCID [Concomitant]
     Active Substance: FAMOTIDINE
     Dosage: 20 MG, DAILY (1/D)
     Route: 065
  3. DUONEB [Concomitant]
     Active Substance: ALBUTEROL SULFATE\IPRATROPIUM BROMIDE
     Dosage: UNK, EVERY 4 HRS
     Route: 065
  4. LOVENOX [Concomitant]
     Active Substance: ENOXAPARIN SODIUM
     Dosage: 40 MG, DAILY (1/D)
     Route: 065
  5. LEVAQUIN [Concomitant]
     Active Substance: LEVOFLOXACIN
     Dosage: 750 MG, OTHER
     Route: 065
  6. LISINOPRIL. [Concomitant]
     Active Substance: LISINOPRIL
     Dosage: 5 MG, DAILY (1/D)
     Route: 065
  7. PLAVIX [Concomitant]
     Active Substance: CLOPIDOGREL BISULFATE
     Dosage: 75 MG, DAILY (1/D)
     Route: 065
  8. NITRO /00003201/ [Concomitant]
     Dosage: UNK, AS NEEDED
     Route: 065
  9. PRILOSEC [Concomitant]
     Active Substance: OMEPRAZOLE MAGNESIUM
     Dosage: 20 MG, DAILY (1/D)
     Route: 065
  10. ZOSYN [Concomitant]
     Active Substance: PIPERACILLIN SODIUM\TAZOBACTAM SODIUM
     Dosage: 3.375 MG, EVERY 6 HRS
     Route: 065
  11. FORTEO [Suspect]
     Active Substance: TERIPARATIDE
     Indication: OSTEOPOROSIS
     Dosage: 20 UG, DAILY (1/D)
     Route: 065
  12. MIRALAX [Concomitant]
     Active Substance: POLYETHYLENE GLYCOL 3350
     Dosage: 17 G, DAILY (1/D)
     Route: 065
  13. VICODIN [Concomitant]
     Active Substance: ACETAMINOPHEN\HYDROCODONE BITARTRATE
     Dosage: UNK, EVERY 6 HRS
     Route: 065
  14. ASMANEX [Concomitant]
     Active Substance: MOMETASONE FUROATE
     Dosage: UNK, 2/D
     Route: 065
  15. SINGULAIR [Concomitant]
     Active Substance: MONTELUKAST SODIUM
     Dosage: UNK, UNKNOWN
     Route: 065
  16. TYLENOL [Concomitant]
     Active Substance: ACETAMINOPHEN
     Dosage: 650 MG, EVERY 4 HRS
     Route: 065
  17. CALCIUM W/VITAMIN D NOS [Concomitant]
     Active Substance: CALCIUM\VITAMIN D
     Dosage: UNK, 2/D
     Route: 065
  18. MEGACE [Concomitant]
     Active Substance: MEGESTROL ACETATE
     Dosage: UNK, 2/D
     Route: 065
  19. PREDNISONE. [Concomitant]
     Active Substance: PREDNISONE
     Dosage: 10 MG, DAILY (1/D)
     Route: 065
  20. MORPHINE [Concomitant]
     Active Substance: MORPHINE
     Dosage: 15 MG, EVERY 8 HRS
     Route: 048

REACTIONS (1)
  - Pneumonia [Unknown]
